FAERS Safety Report 6723163-1 (Version None)
Quarter: 2010Q2

REPORT INFORMATION
  Report Type: 
  Country: None (occurrence: None)
  Receive Date: 20100513
  Receipt Date: 20100502
  Transmission Date: 20101027
  Serious: Yes (Hospitalization)
  Sender: FDA-Public Use
  Company Number: US-JNJFOC-20100501577

PATIENT
  Age: 13 Month
  Sex: Male
  Weight: 14.52 kg

DRUGS (4)
  1. CONCENTRATED TYLENOL INFANT DROPS [Suspect]
     Route: 048
  2. CONCENTRATED TYLENOL INFANT DROPS [Suspect]
     Indication: PYREXIA
     Route: 048
  3. CONCENTRATED MOTRIN INFANTS DROPS [Suspect]
     Route: 048
  4. CONCENTRATED MOTRIN INFANTS DROPS [Suspect]
     Indication: DRUG USE FOR UNKNOWN INDICATION
     Dosage: ALTERNATED WITH TYLENOL
     Route: 048

REACTIONS (4)
  - FEBRILE CONVULSION [None]
  - PRODUCT QUALITY ISSUE [None]
  - PYREXIA [None]
  - STREPTOCOCCAL INFECTION [None]
